FAERS Safety Report 23473988 (Version 2)
Quarter: 2024Q1

REPORT INFORMATION
  Report Type: Spontaneous
  Country: AU (occurrence: AU)
  Receive Date: 20240204
  Receipt Date: 20240212
  Transmission Date: 20240410
  Serious: Yes (Other)
  Sender: FDA-Public Use
  Company Number: AU-GSKCCFAPAC-Case-01899248_AE-79625

PATIENT

DRUGS (1)
  1. FLUTICASONE FUROATE [Suspect]
     Active Substance: FLUTICASONE FUROATE
     Indication: Product used for unknown indication
     Dosage: UNK, 120 DOSES
     Dates: start: 20240125

REACTIONS (4)
  - Surgery [Unknown]
  - Product use issue [Unknown]
  - Product dose omission issue [Unknown]
  - Product complaint [Unknown]
